FAERS Safety Report 6337652-5 (Version None)
Quarter: 2009Q3

REPORT INFORMATION
  Report Type: 
  Country: None (occurrence: None)
  Receive Date: 20090902
  Receipt Date: 20090824
  Transmission Date: 20100115
  Serious: Yes (Death, Hospitalization)
  Sender: FDA-Public Use
  Company Number: ES-AMGEN-QUU361509

PATIENT
  Age: 59 Year
  Sex: Male

DRUGS (4)
  1. NEUPOGEN [Suspect]
     Indication: DRUG USE FOR UNKNOWN INDICATION
     Route: 058
     Dates: start: 20090211, end: 20090211
  2. OMEPRAZOLE [Concomitant]
     Route: 042
     Dates: start: 20090211, end: 20090215
  3. VANCOMYCIN [Concomitant]
     Route: 042
     Dates: start: 20090211, end: 20090215
  4. TAZOCEL [Concomitant]
     Route: 042
     Dates: start: 20090211, end: 20090215

REACTIONS (1)
  - VENTRICULAR TACHYCARDIA [None]
